FAERS Safety Report 15603811 (Version 2)
Quarter: 2018Q4

REPORT INFORMATION
  Report Type: Spontaneous
  Country: IN (occurrence: IN)
  Receive Date: 20181109
  Receipt Date: 20181218
  Transmission Date: 20190205
  Serious: Yes (Life-Threatening, Hospitalization)
  Sender: FDA-Public Use
  Company Number: IN-PFIZER INC-2018461837

PATIENT
  Age: 28 Year
  Sex: Female

DRUGS (7)
  1. CALCIUM GLUCONATE. [Suspect]
     Active Substance: CALCIUM GLUCONATE
     Indication: EMERGENCY CARE
     Dosage: 10 ML, 1X/DAY
  2. GLUCAGON. [Suspect]
     Active Substance: GLUCAGON
     Indication: EMERGENCY CARE
     Dosage: 4 MG/H
  3. NOREPINEPHRINE. [Suspect]
     Active Substance: NOREPINEPHRINE
     Indication: EMERGENCY CARE
     Dosage: UNK
  4. FAT EMULSION NOS [Suspect]
     Active Substance: EGG PHOSPHOLIPIDS\SAFFLOWER OIL\SOYBEAN OIL
     Indication: EMERGENCY CARE
     Dosage: UNK
  5. VASOPRESSIN. [Suspect]
     Active Substance: VASOPRESSIN
     Indication: EMERGENCY CARE
     Dosage: 4.8 U/H
  6. ADRENALINE [Suspect]
     Active Substance: EPINEPHRINE
     Indication: EMERGENCY CARE
     Dosage: UNK
  7. PHENYLEPHRINE [Suspect]
     Active Substance: PHENYLEPHRINE\PHENYLEPHRINE HYDROCHLORIDE
     Indication: EMERGENCY CARE
     Dosage: 14 MICROG/KG/MIN

REACTIONS (1)
  - Drug ineffective [Unknown]
